FAERS Safety Report 10222349 (Version 1)
Quarter: 2014Q2

REPORT INFORMATION
  Report Type: Spontaneous
  Country: US (occurrence: US)
  Receive Date: 20140606
  Receipt Date: 20140606
  Transmission Date: 20141212
  Serious: Yes (Death, Hospitalization)
  Sender: FDA-Public Use
  Company Number: US-PFIZER INC-2014154130

PATIENT
  Age: 82 Year
  Sex: Female
  Weight: 47.62 kg

DRUGS (3)
  1. REVATIO [Suspect]
     Indication: PULMONARY HYPERTENSION
     Dosage: 20 MG, 3X/DAY
     Dates: end: 20140521
  2. MORPHINE SULFATE [Suspect]
     Dosage: UNK
     Dates: start: 20140521
  3. SYNTHROID [Concomitant]
     Dosage: UNK

REACTIONS (2)
  - Respiratory rate decreased [Fatal]
  - Hypotension [Unknown]
